FAERS Safety Report 20722443 (Version 1)
Quarter: 2022Q2

REPORT INFORMATION
  Report Type: Spontaneous
  Country: JP (occurrence: JP)
  Receive Date: 20220418
  Receipt Date: 20220418
  Transmission Date: 20220721
  Serious: Yes (Other)
  Sender: FDA-Public Use
  Company Number: JP-JAZZ-2022-JP-012352

PATIENT
  Age: 6 Year
  Sex: Male

DRUGS (2)
  1. ASPARAGINASE [Suspect]
     Active Substance: ASPARAGINASE
     Indication: Acute lymphocytic leukaemia
     Dosage: 10,000 U/M2 ON DAY 6
     Route: 030
  2. MESNA [Suspect]
     Active Substance: MESNA
     Indication: Prophylaxis

REACTIONS (1)
  - Panniculitis [Unknown]
